FAERS Safety Report 8151846 (Version 2)
Quarter: 2013Q4

REPORT INFORMATION
  Report Type: Spontaneous
  Country: US (occurrence: US)
  Receive Date: 20110922
  Receipt Date: 20131015
  Transmission Date: 20140711
  Serious: No
  Sender: FDA-Public Use
  Company Number: US-ASTRAZENECA-2008UW23538

PATIENT
  Sex: Male

DRUGS (5)
  1. SEROQUEL [Suspect]
     Indication: NEUROTRANSMITTER LEVEL ALTERED
     Route: 048
     Dates: start: 20070514
  2. SEROQUEL [Suspect]
     Indication: NEUROTRANSMITTER LEVEL ALTERED
     Route: 048
  3. SEROQUEL [Suspect]
     Indication: NEUROTRANSMITTER LEVEL ALTERED
     Route: 048
  4. SEROQUEL [Suspect]
     Indication: NEUROTRANSMITTER LEVEL ALTERED
     Route: 048
  5. ZOLOFT [Concomitant]

REACTIONS (11)
  - Glucose tolerance impaired [Unknown]
  - Throat tightness [Unknown]
  - Anxiety [Unknown]
  - Stress [Unknown]
  - Dysphagia [Unknown]
  - Weight increased [Unknown]
  - Blood cholesterol increased [Unknown]
  - Drug withdrawal syndrome [Unknown]
  - Drug effect delayed [Recovered/Resolved]
  - Drug dose omission [Unknown]
  - Off label use [Unknown]
